FAERS Safety Report 7821870-0 (Version None)
Quarter: 2011Q4

REPORT INFORMATION
  Report Type: 
  Country: None (occurrence: None)
  Receive Date: 20111018
  Receipt Date: 20110816
  Transmission Date: 20120403
  Serious: No
  Sender: FDA-Public Use
  Company Number: US-ASTRAZENECA-2011SE49147

PATIENT
  Age: 30 Year
  Sex: Female

DRUGS (2)
  1. PROAIR HFA [Concomitant]
  2. SYMBICORT [Suspect]
     Indication: ASTHMA
     Dosage: 80-4.5  TOTAL DAILY DOSEAGE
     Route: 055

REACTIONS (1)
  - FEELING ABNORMAL [None]
